FAERS Safety Report 9557683 (Version 3)
Quarter: 2013Q4

REPORT INFORMATION
  Report Type: Report from Study
  Country: DE (occurrence: DE)
  Receive Date: 20130926
  Receipt Date: 20131206
  Transmission Date: 20140711
  Serious: Yes (Hospitalization)
  Sender: FDA-Public Use
  Company Number: DE-AMGEN-DEUCT2013067389

PATIENT
  Age: 61 Year
  Sex: Male
  Weight: 72 kg

DRUGS (3)
  1. ETANERCEPT [Suspect]
     Indication: PSORIASIS
     Dosage: 50 MG, WEEKLY
     Route: 058
     Dates: start: 20100105, end: 20130612
  2. DAIVONEX [Concomitant]
     Indication: PSORIASIS
     Dosage: 120 MG, 2X/DAY (MONDAY TO FRIDAY)
     Dates: start: 2012
  3. DAIVOBET [Concomitant]
     Indication: PSORIASIS
     Dosage: 50 MUG/G (SATURDAY AND SUNDAY ONCE/DAY)
     Dates: start: 2012

REACTIONS (1)
  - Transitional cell carcinoma [Recovered/Resolved]
